FAERS Safety Report 11713561 (Version 2)
Quarter: 2016Q1

REPORT INFORMATION
  Report Type: Other
  Country: US (occurrence: US)
  Receive Date: 20151109
  Receipt Date: 20160224
  Transmission Date: 20160525
  Serious: No
  Sender: FDA-Public Use
  Company Number: PHHY2015US146263

PATIENT
  Sex: Male
  Weight: 9.98 kg

DRUGS (13)
  1. GILENYA [Suspect]
     Active Substance: FINGOLIMOD HYDROCHLORIDE
     Indication: FOETAL EXPOSURE DURING PREGNANCY
     Dosage: MATERNAL DOSE: 0.5 MG, QD
     Route: 064
  2. Z-PACK [Concomitant]
     Active Substance: AZITHROMYCIN DIHYDRATE
     Indication: FOETAL EXPOSURE DURING PREGNANCY
     Dosage: MATERNAL DOSE: 250 MG, QD
     Route: 064
  3. ACETAMINOPHEN AND CODEINE [Concomitant]
     Active Substance: ACETAMINOPHEN\CODEINE PHOSPHATE
     Indication: FOETAL EXPOSURE DURING PREGNANCY
     Dosage: MATERNAL EXPOSURE
     Route: 064
  4. AMANTADINE [Concomitant]
     Active Substance: AMANTADINE
     Indication: FOETAL EXPOSURE DURING PREGNANCY
     Dosage: MATERNAL EXPOSURE
     Route: 064
  5. AMBIEN CR [Concomitant]
     Active Substance: ZOLPIDEM TARTRATE
     Indication: FOETAL EXPOSURE DURING PREGNANCY
     Dosage: MATERNAL EXPOSURE
     Route: 064
  6. CARAFATE [Concomitant]
     Active Substance: SUCRALFATE
     Indication: FOETAL EXPOSURE DURING PREGNANCY
     Dosage: MATERNAL EXPOSURE
     Route: 064
  7. VITAMIN B12 [Concomitant]
     Active Substance: CYANOCOBALAMIN
     Indication: FOETAL EXPOSURE DURING PREGNANCY
     Dosage: MATERNAL EXPOSURE
     Route: 064
  8. PREDNISONE. [Concomitant]
     Active Substance: PREDNISONE
     Indication: FOETAL EXPOSURE DURING PREGNANCY
     Dosage: MATERNAL EXPOSURE
     Route: 064
  9. BACLOFEN. [Concomitant]
     Active Substance: BACLOFEN
     Indication: FOETAL EXPOSURE DURING PREGNANCY
     Dosage: MATERNAL EXPOSURE
     Route: 064
  10. VITAMIN D [Concomitant]
     Active Substance: CHOLECALCIFEROL
     Indication: FOETAL EXPOSURE DURING PREGNANCY
     Dosage: MATERNAL EXPOSURE
     Route: 064
  11. ACTHAR [Concomitant]
     Active Substance: CORTICOTROPIN
     Indication: FOETAL EXPOSURE DURING PREGNANCY
     Dosage: MATERNAL EXPOSURE
     Route: 064
  12. VENLAFAXINE [Concomitant]
     Active Substance: VENLAFAXINE HYDROCHLORIDE
     Indication: FOETAL EXPOSURE DURING PREGNANCY
     Dosage: MATERNAL EXPOSURE
     Route: 064
  13. NAPROXEN. [Concomitant]
     Active Substance: NAPROXEN
     Indication: FOETAL EXPOSURE DURING PREGNANCY
     Dosage: MATERNAL EXPOSURE
     Route: 064

REACTIONS (1)
  - No adverse event [Unknown]
